FAERS Safety Report 17697472 (Version 3)
Quarter: 2020Q4

REPORT INFORMATION
  Report Type: Other
  Country: DE (occurrence: DE)
  Receive Date: 20200423
  Receipt Date: 20201101
  Transmission Date: 20210113
  Serious: Yes (Death, Hospitalization, Other)
  Sender: FDA-Public Use
  Company Number: DE-ROCHE-2585229

PATIENT
  Age: 59 Year
  Sex: Female

DRUGS (8)
  1. TOCILIZUMAB. [Suspect]
     Active Substance: TOCILIZUMAB
     Indication: RHEUMATOID ARTHRITIS
     Route: 058
     Dates: start: 201908
  2. NALOXONE [Concomitant]
     Active Substance: NALOXONE
  3. L-THYROXIN [Concomitant]
     Active Substance: LEVOTHYROXINE SODIUM
  4. VOLTAREN [Concomitant]
     Active Substance: DICLOFENAC SODIUM
  5. HCT [Concomitant]
     Active Substance: HYDROCHLOROTHIAZIDE
  6. PANTOZOL [Concomitant]
     Active Substance: PANTOPRAZOLE SODIUM
  7. DELIX [Concomitant]
  8. NOVAMINSULFON [Concomitant]
     Active Substance: METAMIZOLE

REACTIONS (6)
  - Multiple organ dysfunction syndrome [Unknown]
  - Gallbladder cancer [Fatal]
  - Lung infiltration [Fatal]
  - Migraine [Unknown]
  - Hypertension [Unknown]
  - Hypothyroidism [Unknown]

NARRATIVE: CASE EVENT DATE: 201908
